FAERS Safety Report 9846122 (Version 1)
Quarter: 2013Q4

REPORT INFORMATION
  Report Type: Spontaneous
  Country: US (occurrence: None)
  Receive Date: 20131223
  Receipt Date: 20131223
  Transmission Date: 20140711
  Serious: Yes (Other)
  Sender: FDA-Public Use
  Company Number: SYM-2013-09538

PATIENT
  Age: 29 Year
  Sex: Male

DRUGS (1)
  1. XENAZINE [Suspect]
     Indication: DYSKINESIA
     Dosage: 2 IN 1 D
     Route: 048
     Dates: start: 20120505

REACTIONS (3)
  - Depression suicidal [None]
  - Suicidal ideation [None]
  - Initial insomnia [None]
